FAERS Safety Report 8439503-1 (Version None)
Quarter: 2012Q2

REPORT INFORMATION
  Report Type: 
  Country: None (occurrence: None)
  Receive Date: 20120611
  Receipt Date: 20120611
  Transmission Date: 20120825
  Serious: Yes (Other)
  Sender: FDA-Public Use
  Company Number: None

PATIENT
  Age: 77 Year
  Sex: Male

DRUGS (3)
  1. PROZAC [Concomitant]
  2. AMMONIUM LACTATE [Suspect]
     Indication: ECZEMA
     Dosage: ONE A DAY TOP
     Route: 061
     Dates: start: 20100101
  3. OMEPRAZOLE [Concomitant]

REACTIONS (2)
  - NAUSEA [None]
  - DIZZINESS [None]
